FAERS Safety Report 12804933 (Version 1)
Quarter: 2016Q4

REPORT INFORMATION
  Report Type: Spontaneous
  Country: FR (occurrence: FR)
  Receive Date: 20161004
  Receipt Date: 20161004
  Transmission Date: 20170207
  Serious: Yes (Other)
  Sender: FDA-Public Use
  Company Number: FR-BAXTER-2016BAX050632

PATIENT
  Age: 0 Day
  Sex: Female
  Weight: 2.93 kg

DRUGS (14)
  1. ONDANSETRON [Suspect]
     Active Substance: ONDANSETRON
     Indication: FOETAL EXPOSURE DURING PREGNANCY
     Dosage: MOTHER DOSE: 8 MG, TWICE DAILY
     Route: 064
  2. IMUREL [Suspect]
     Active Substance: AZATHIOPRINE SODIUM
     Indication: FOETAL EXPOSURE DURING PREGNANCY
     Dosage: FOR MOTHER TO REPLACE ENDOXAN (CYCLOPHOSPHAMIDE) (DOSE NOT REPORTED)
     Route: 064
  3. ACTONEL [Suspect]
     Active Substance: RISEDRONATE SODIUM
     Indication: FOETAL EXPOSURE DURING PREGNANCY
     Dosage: MOTHER DOSE NOT REPORTED
     Route: 064
     Dates: start: 20150604, end: 20150729
  4. PREDNISONE. [Suspect]
     Active Substance: PREDNISONE
     Indication: FOETAL EXPOSURE DURING PREGNANCY
     Dosage: CORTICOSTEROID THERAPY IN VIALS FOR MOTHER
     Route: 064
  5. KARDEGIC [Suspect]
     Active Substance: ASPIRIN LYSINE
     Indication: FOETAL EXPOSURE DURING PREGNANCY
     Dosage: MOTHER DOSE NOT REPORTED
     Route: 064
     Dates: start: 20150729
  6. SYNTOCINON [Suspect]
     Active Substance: OXYTOCIN
     Indication: FOETAL EXPOSURE DURING PREGNANCY
     Dosage: DURING DELIVERY MOTHER^S INTRAVENOUS DOSE: NOT REPORTED
     Route: 064
     Dates: start: 20160224
  7. ENDOXAN 1000 MG, POUDRE POUR SOLUTION INJECTABLE [Suspect]
     Active Substance: CYCLOPHOSPHAMIDE
     Indication: FOETAL EXPOSURE DURING PREGNANCY
     Dosage: MOTHER^S DOSE: 1 GRAM INTRAVENOUSLY, FIRST COURSE
     Route: 064
     Dates: start: 20150601, end: 20150630
  8. ENDOXAN 1000 MG, POUDRE POUR SOLUTION INJECTABLE [Suspect]
     Active Substance: CYCLOPHOSPHAMIDE
     Dosage: MOTHER^S DOSE: 1 GRAM INTRAVENOUSLY, SECOND COURSE
     Route: 064
     Dates: start: 20150630
  9. CALCIDOSE [Suspect]
     Active Substance: CALCIUM CARBONATE
     Indication: FOETAL EXPOSURE DURING PREGNANCY
     Dosage: MOTHER DOSE NOT REPORTED
     Route: 064
     Dates: start: 20150604
  10. UROMITEXAN 400 MG, COMPRIM? PELLICUL? S?CABLE [Suspect]
     Active Substance: MESNA
     Indication: FOETAL EXPOSURE DURING PREGNANCY
     Dosage: MOTHER DOSE: 200 MG, THREE TIMES A DAY
     Route: 064
  11. DIFFU K [Suspect]
     Active Substance: POTASSIUM CHLORIDE
     Indication: FOETAL EXPOSURE DURING PREGNANCY
     Dosage: MOTHER DOSE NOT REPORTED
     Route: 064
     Dates: start: 20150604
  12. METHYLPREDNISOLONE. [Suspect]
     Active Substance: METHYLPREDNISOLONE
     Indication: FOETAL EXPOSURE DURING PREGNANCY
     Dosage: CORTICOSTEROID THERAPY IN VIALS, MOTHER DOSE: NOT REPORTED
     Route: 064
     Dates: start: 20150525
  13. RIFINAH [Suspect]
     Active Substance: ISONIAZID\RIFAMPIN
     Indication: FOETAL EXPOSURE DURING PREGNANCY
     Dosage: MOTHER DOSE: 2 TABLETS DAILY
     Route: 064
     Dates: start: 20150524, end: 20151008
  14. LANTUS [Suspect]
     Active Substance: INSULIN GLARGINE
     Indication: FOETAL EXPOSURE DURING PREGNANCY
     Dosage: MOTHER DOSE NOT REPORTED
     Route: 064
     Dates: start: 20150729

REACTIONS (7)
  - Limb reduction defect [None]
  - Congenital hand malformation [None]
  - Maternal drugs affecting foetus [None]
  - Congenital nose malformation [None]
  - Foetal malpresentation [None]
  - Congenital hepatobiliary anomaly [None]
  - Foetal heart rate abnormal [Unknown]

NARRATIVE: CASE EVENT DATE: 20160224
